FAERS Safety Report 21786934 (Version 3)
Quarter: 2023Q2

REPORT INFORMATION
  Report Type: Report from Study
  Country: GB (occurrence: GB)
  Receive Date: 20221228
  Receipt Date: 20230530
  Transmission Date: 20230722
  Serious: Yes (Hospitalization)
  Sender: FDA-Public Use
  Company Number: GB-002147023-NVSC2022GB297819

PATIENT
  Sex: Female

DRUGS (1)
  1. MAYZENT [Suspect]
     Active Substance: SIPONIMOD
     Indication: Multiple sclerosis
     Dosage: 2 MG, QD (28 TABLET 2 X 14 TABLETS)
     Route: 048

REACTIONS (4)
  - Pneumonia [Unknown]
  - Fall [Unknown]
  - Full blood count decreased [Unknown]
  - Blood test abnormal [Unknown]
